FAERS Safety Report 5919275-2 (Version None)
Quarter: 2008Q4

REPORT INFORMATION
  Report Type: 
  Country: None (occurrence: None)
  Receive Date: 20081015
  Receipt Date: 20081004
  Transmission Date: 20090506
  Serious: Yes (Hospitalization, Other)
  Sender: FDA-Public Use
  Company Number: PHNU2008DE02006

PATIENT
  Sex: Male

DRUGS (2)
  1. TEGRETOL [Suspect]
     Indication: SIMPLE PARTIAL SEIZURES
  2. TRILEPTAL [Suspect]
     Indication: SIMPLE PARTIAL SEIZURES
     Dosage: 0.5 DF, QD
     Route: 048

REACTIONS (6)
  - ABDOMINAL DISTENSION [None]
  - ABDOMINAL PAIN UPPER [None]
  - FAECES DISCOLOURED [None]
  - GASTRIC HAEMORRHAGE [None]
  - HAEMATEMESIS [None]
  - OESOPHAGEAL HAEMORRHAGE [None]
